FAERS Safety Report 20281897 (Version 3)
Quarter: 2022Q2

REPORT INFORMATION
  Report Type: Report from Study
  Country: NL (occurrence: NL)
  Receive Date: 20220103
  Receipt Date: 20220602
  Transmission Date: 20220721
  Serious: Yes (Other)
  Sender: FDA-Public Use
  Company Number: NL-BRISTOL-MYERS SQUIBB COMPANY-BMS-2021-126036

PATIENT
  Age: 72 Year
  Sex: Male

DRUGS (1)
  1. NIVOLUMAB [Suspect]
     Active Substance: NIVOLUMAB
     Indication: Malignant melanoma
     Dosage: 480 MILLIGRAM, QMO
     Route: 065
     Dates: start: 20210708, end: 20220520

REACTIONS (5)
  - Hypothalamo-pituitary disorder [Recovering/Resolving]
  - Fatigue [Unknown]
  - Dry mouth [Unknown]
  - Pruritus [Recovered/Resolved]
  - Decreased appetite [Unknown]
